FAERS Safety Report 9467406 (Version 1)
Quarter: 2013Q3

REPORT INFORMATION
  Report Type: Spontaneous
  Country: US (occurrence: None)
  Receive Date: 20130819
  Receipt Date: 20130819
  Transmission Date: 20140515
  Serious: No
  Sender: FDA-Public Use
  Company Number: None

PATIENT
  Age: 74 Year
  Sex: Male
  Weight: 101 kg

DRUGS (2)
  1. BACTRIM DS [Suspect]
     Indication: INFECTION
     Dosage: 2 PILLS TID ORAL
     Route: 048
     Dates: start: 20130609, end: 20130612
  2. GLIPIZIDE [Suspect]
     Indication: DIABETES MELLITUS
     Dosage: 1 TAB QD ORAL
     Route: 048
     Dates: start: 20130606, end: 20130611

REACTIONS (2)
  - Respiratory disorder [None]
  - Hypoglycaemia [None]
